FAERS Safety Report 8226742-8 (Version None)
Quarter: 2012Q1

REPORT INFORMATION
  Report Type: 
  Country: None (occurrence: None)
  Receive Date: 20120322
  Receipt Date: 20120315
  Transmission Date: 20120608
  Serious: Yes (Hospitalization, Other)
  Sender: FDA-Public Use
  Company Number: US-BAYER-201031537NA

PATIENT
  Age: 38 Year
  Sex: Female
  Weight: 53.515 kg

DRUGS (3)
  1. YAZ [Suspect]
     Indication: CONTRACEPTION
     Route: 048
     Dates: start: 20050101, end: 20080501
  2. YAZ [Suspect]
     Indication: PREMENSTRUAL SYNDROME
  3. EXCEDRIN EXTRA STRENGTH TABLETS [Concomitant]
     Indication: MIGRAINE

REACTIONS (4)
  - HEMIPLEGIA [None]
  - ISCHAEMIC STROKE [None]
  - HEMIPARESIS [None]
  - GAIT DISTURBANCE [None]
